FAERS Safety Report 6803648-X (Version None)
Quarter: 2010Q2

REPORT INFORMATION
  Report Type: 
  Country: None (occurrence: None)
  Receive Date: 20100628
  Receipt Date: 20100622
  Transmission Date: 20101027
  Serious: Yes (Other)
  Sender: FDA-Public Use
  Company Number: US-BAYER-201025798NA

PATIENT
  Age: 48 Year
  Sex: Female

DRUGS (1)
  1. AVELOX [Suspect]
     Indication: PNEUMONIA
     Route: 048
     Dates: start: 20090101, end: 20090101

REACTIONS (4)
  - BACK PAIN [None]
  - HEPATIC FAILURE [None]
  - JAUNDICE [None]
  - RENAL TRANSPLANT [None]
